FAERS Safety Report 23026318 (Version 4)
Quarter: 2023Q4

REPORT INFORMATION
  Report Type: Spontaneous
  Country: JP (occurrence: JP)
  Receive Date: 20231004
  Receipt Date: 20231102
  Transmission Date: 20240110
  Serious: Yes (Other)
  Sender: FDA-Public Use
  Company Number: JP-ORGANON-O2309JPN003449

PATIENT
  Age: 13 Year
  Sex: Female

DRUGS (4)
  1. ALENDRONATE SODIUM [Suspect]
     Active Substance: ALENDRONATE SODIUM
     Indication: Bone density decreased
     Dosage: 35 MILLIGRAM PER WEEK
     Route: 048
     Dates: start: 20230810, end: 20230925
  2. METHOTREXATE [Concomitant]
     Active Substance: METHOTREXATE
     Indication: Leukaemia
     Dosage: 25 MILLIGRAM/DAY
     Route: 048
     Dates: end: 20230929
  3. MERCAPTOPURINE [Concomitant]
     Active Substance: MERCAPTOPURINE
     Indication: Leukaemia
     Dosage: 0.66 GRAM/DAY
     Route: 048
     Dates: end: 20231005
  4. SULFAMETHOXAZOLE\TRIMETHOPRIM [Concomitant]
     Active Substance: SULFAMETHOXAZOLE\TRIMETHOPRIM
     Indication: Leukaemia
     Dosage: 2 DOSAGE FORM/DAY
     Route: 048
     Dates: end: 20231005

REACTIONS (3)
  - Hepatic function abnormal [Not Recovered/Not Resolved]
  - Jaundice [Unknown]
  - Product administered to patient of inappropriate age [Unknown]

NARRATIVE: CASE EVENT DATE: 20230101
